FAERS Safety Report 6998801-9 (Version None)
Quarter: 2010Q3

REPORT INFORMATION
  Report Type: 
  Country: None (occurrence: None)
  Receive Date: 20100920
  Receipt Date: 20100907
  Transmission Date: 20110219
  Serious: Yes (Other)
  Sender: FDA-Public Use
  Company Number: US-RB-013910-10

PATIENT
  Age: 41 Year
  Sex: Female

DRUGS (1)
  1. DELSYM [Suspect]
     Dosage: PATIENT DRANK ENTIRE BOTTLE.
     Route: 048
     Dates: start: 20100907

REACTIONS (3)
  - DRUG ABUSE [None]
  - FEELING ABNORMAL [None]
  - HYPOAESTHESIA [None]
